FAERS Safety Report 7095827-4 (Version None)
Quarter: 2010Q4

REPORT INFORMATION
  Report Type: 
  Country: None (occurrence: None)
  Receive Date: 20101109
  Receipt Date: 20101109
  Transmission Date: 20110411
  Serious: Yes (Hospitalization)
  Sender: FDA-Public Use
  Company Number: None

PATIENT
  Sex: Female
  Weight: 92 kg

DRUGS (3)
  1. CARBOPLATIN [Suspect]
     Dosage: 850 MG
     Dates: end: 20101014
  2. TAXOTERE [Suspect]
     Dosage: 147 MG
     Dates: end: 20101014
  3. HERCEPTIN [Suspect]
     Dosage: 184 MG
     Dates: end: 20101021

REACTIONS (3)
  - CHEST PAIN [None]
  - GASTRITIS [None]
  - HEPATIC STEATOSIS [None]
